FAERS Safety Report 23747621 (Version 1)
Quarter: 2024Q2

REPORT INFORMATION
  Report Type: Spontaneous
  Country: CN (occurrence: CN)
  Receive Date: 20240416
  Receipt Date: 20240416
  Transmission Date: 20240715
  Serious: Yes (Hospitalization, Other)
  Sender: FDA-Public Use
  Company Number: None

PATIENT
  Age: 48 Year
  Sex: Female
  Weight: 62 kg

DRUGS (4)
  1. CYCLOPHOSPHAMIDE [Suspect]
     Active Substance: CYCLOPHOSPHAMIDE
     Indication: Breast cancer female
     Dosage: UNK, THREE COURSES OF TC REGIMEN CHEMOTHERAPY
     Route: 065
  2. CYCLOPHOSPHAMIDE [Suspect]
     Active Substance: CYCLOPHOSPHAMIDE
     Dosage: 1 G, ONE TIME IN ONE DAY, D1, FOURTH CHEMOTHERAPY
     Route: 041
     Dates: start: 20240313, end: 20240313
  3. PACLITAXEL [Suspect]
     Active Substance: PACLITAXEL
     Indication: Breast cancer female
     Dosage: UNK, THREE COURSES OF TC REGIMEN CHEMOTHERAPY
     Route: 065
  4. PACLITAXEL [Suspect]
     Active Substance: PACLITAXEL
     Dosage: 400 MG, ONE TIME IN ONE DAY, D1, FOURTH CHEMOTHERAPY
     Route: 041
     Dates: start: 20240313, end: 20240313

REACTIONS (3)
  - Gastrointestinal disorder [Unknown]
  - Nausea [Recovered/Resolved]
  - Discomfort [Unknown]

NARRATIVE: CASE EVENT DATE: 20240313
